FAERS Safety Report 6332441-X (Version None)
Quarter: 2009Q3

REPORT INFORMATION
  Report Type: 
  Country: None (occurrence: None)
  Receive Date: 20090828
  Receipt Date: 20090820
  Transmission Date: 20100115
  Serious: Yes (Other)
  Sender: FDA-Public Use
  Company Number: CA-JNJFOC-20090806825

PATIENT
  Sex: Female

DRUGS (3)
  1. REMICADE [Suspect]
     Dosage: 2ND DOSE
     Route: 042
  2. REMICADE [Suspect]
     Dosage: RESTARTED
     Route: 042
  3. REMICADE [Suspect]
     Indication: CROHN'S DISEASE
     Route: 042

REACTIONS (2)
  - ARTHRITIS [None]
  - INFUSION RELATED REACTION [None]
